FAERS Safety Report 5910200-7 (Version None)
Quarter: 2008Q4

REPORT INFORMATION
  Report Type: 
  Country: None (occurrence: None)
  Receive Date: 20081007
  Receipt Date: 20071009
  Transmission Date: 20090506
  Serious: No
  Sender: FDA-Public Use
  Company Number: US-ASTRAZENECA-2007UW23421

PATIENT
  Age: 69 Year
  Sex: Female
  Weight: 114.3 kg

DRUGS (2)
  1. ARIMIDEX [Suspect]
     Indication: BREAST CANCER
     Route: 048
  2. NEXIUM [Concomitant]
     Route: 048

REACTIONS (1)
  - EPHELIDES [None]
